FAERS Safety Report 9306675 (Version 1)
Quarter: 2013Q2

REPORT INFORMATION
  Report Type: Spontaneous
  Country: US (occurrence: US)
  Receive Date: 20130523
  Receipt Date: 20130523
  Transmission Date: 20140414
  Serious: Yes (Hospitalization, Other)
  Sender: FDA-Public Use
  Company Number: US-ALEXION PHARMACEUTICALS INC.-A201300874

PATIENT
  Sex: Male
  Weight: 69 kg

DRUGS (21)
  1. SOLIRIS 300MG [Suspect]
     Indication: PAROXYSMAL NOCTURNAL HAEMOGLOBINURIA
     Dosage: UNK
     Route: 042
     Dates: start: 20101025, end: 201103
  2. LUPRON [Concomitant]
     Indication: PROSTATE CANCER
     Dosage: UNK
     Dates: start: 20101103
  3. CITRACAL + D [Concomitant]
     Dosage: 315 MG, QD
     Route: 048
  4. ENALAPRIL MALEATE [Concomitant]
     Dosage: 10 MG, QD
     Route: 048
  5. FOLIC ACID [Concomitant]
     Dosage: 1 MG, QD
     Route: 048
  6. INSULIN REGULAR [Concomitant]
     Indication: DIABETES MELLITUS
     Dosage: 6 IU, QD
     Route: 058
  7. IRON [Concomitant]
     Dosage: 27 MG, QD
     Route: 048
  8. LANTUS [Concomitant]
     Dosage: 10 IU, QD HS
     Route: 058
  9. LANTUS [Concomitant]
     Dosage: 16 IU, QD HS
     Route: 058
  10. LANTUS [Concomitant]
     Dosage: 18 IU, QD HS
     Route: 058
  11. LEVAQUIN [Concomitant]
     Dosage: 500 MG, QD
     Route: 048
  12. METFORMIN HYDROCHLORIDE [Concomitant]
     Indication: DIABETES MELLITUS
     Dosage: 500 MG, QD
     Route: 048
  13. NORCO [Concomitant]
     Dosage: 10-325 MG Q4H PRN
     Route: 048
  14. PAXIL [Concomitant]
     Dosage: 20 MG, QD
     Route: 048
  15. PREDNISONE [Concomitant]
     Dosage: 20 MG, QD
     Route: 048
  16. PRILOSEC [Concomitant]
     Dosage: 0.05 MG, QD
     Route: 048
  17. TAMSULOSINE HCL [Concomitant]
     Dosage: 0.4 MG, QD
     Route: 048
  18. XANAX [Concomitant]
     Dosage: 0.5 MG, QD
     Route: 048
  19. MUCINEX D [Concomitant]
     Dosage: 600 MG-60 MG Q12H
     Route: 048
  20. SYMBICORT [Concomitant]
     Dosage: 4.5 ?G, AS DIRECTED
  21. DESFERAL [Concomitant]
     Route: 030

REACTIONS (2)
  - Pancytopenia [Unknown]
  - Haematuria [Not Recovered/Not Resolved]
